FAERS Safety Report 8509346-9 (Version None)
Quarter: 2012Q3

REPORT INFORMATION
  Report Type: 
  Country: None (occurrence: None)
  Receive Date: 20120713
  Receipt Date: 20120706
  Transmission Date: 20120928
  Serious: No
  Sender: FDA-Public Use
  Company Number: US-BAYER-2012-067739

PATIENT
  Age: 50 Year
  Sex: Female

DRUGS (2)
  1. MAGNEVIST [Suspect]
     Indication: NUCLEAR MAGNETIC RESONANCE IMAGING BREAST
     Dosage: 15 ML, ONCE
     Route: 042
     Dates: start: 20120622, end: 20120622
  2. MAGNEVIST [Suspect]
     Dosage: 5 ML, ONCE
     Route: 042
     Dates: start: 20120622, end: 20120622

REACTIONS (1)
  - URTICARIA [None]
